FAERS Safety Report 13638814 (Version 1)
Quarter: 2017Q2

REPORT INFORMATION
  Report Type: Spontaneous
  Country: DE (occurrence: DE)
  Receive Date: 20170609
  Receipt Date: 20170609
  Transmission Date: 20170830
  Serious: Yes (Other)
  Sender: FDA-Public Use
  Company Number: DE-BAYER-2017-107876

PATIENT
  Sex: Female

DRUGS (1)
  1. CIPROBAY 500 MG [Suspect]
     Active Substance: CIPROFLOXACIN
     Indication: ERYSIPELAS
     Dosage: UNK

REACTIONS (5)
  - Fall [None]
  - Erysipelas [None]
  - Chills [None]
  - Upper limb fracture [None]
  - Drug ineffective [None]
